FAERS Safety Report 15393422 (Version 1)
Quarter: 2018Q3

REPORT INFORMATION
  Report Type: Other
  Country: US (occurrence: US)
  Receive Date: 20180917
  Receipt Date: 20180917
  Transmission Date: 20181010
  Serious: Yes (Hospitalization)
  Sender: FDA-Public Use
  Company Number: US-LEADIANT BIOSCIENCES INC-2017STPI000834

PATIENT
  Sex: Female

DRUGS (1)
  1. MATULANE [Suspect]
     Active Substance: PROCARBAZINE HYDROCHLORIDE
     Indication: DIFFUSE LARGE B-CELL LYMPHOMA
     Dosage: 50 MG ALTERNATING WITH 100 MG, DAILY, FOR 10 DAYS OF CYCLE
     Route: 048
     Dates: start: 20171020

REACTIONS (2)
  - Drug intolerance [Not Recovered/Not Resolved]
  - Pneumonia [Not Recovered/Not Resolved]
